FAERS Safety Report 10832276 (Version 1)
Quarter: 2015Q1

REPORT INFORMATION
  Report Type: Report from Study
  Country: US (occurrence: US)
  Receive Date: 20150219
  Receipt Date: 20150219
  Transmission Date: 20150721
  Serious: No
  Sender: FDA-Public Use
  Company Number: US-ABBVIE-14P-163-1195167-00

PATIENT
  Age: 53 Year
  Sex: Female

DRUGS (10)
  1. XANAX [Suspect]
     Active Substance: ALPRAZOLAM
     Indication: TOURETTE^S DISORDER
  2. CHONDROITIN SULFATE (BOVINE)\GLUCOSAMINE SULFATE [Concomitant]
     Active Substance: CHONDROITIN SULFATE (BOVINE)\GLUCOSAMINE SULFATE
     Indication: ARTHROPATHY
  3. ATENOLOL. [Concomitant]
     Active Substance: ATENOLOL
     Indication: ARRHYTHMIA
  4. MAGNESIUM W/VITAMIN B6 [Concomitant]
     Indication: SUPPLEMENTATION THERAPY
  5. HUMIRA [Suspect]
     Active Substance: ADALIMUMAB
     Indication: CROHN^S DISEASE
     Dates: start: 20131114, end: 20131114
  6. ESTROGEN NOS W/PROGESTERONE [Concomitant]
     Indication: PRODUCT USED FOR UNKNOWN INDICATION
     Dosage: AT NIGHT
  7. PROAIR HFA [Concomitant]
     Active Substance: ALBUTEROL SULFATE
     Indication: ASTHMA
     Route: 055
  8. HUMIRA [Suspect]
     Active Substance: ADALIMUMAB
     Dates: start: 20131128, end: 20131128
  9. HUMIRA [Suspect]
     Active Substance: ADALIMUMAB
     Dates: start: 20131212
  10. CALCIUM W/VITAMINS NOS [Concomitant]
     Indication: SUPPLEMENTATION THERAPY

REACTIONS (5)
  - Hormone level abnormal [Not Recovered/Not Resolved]
  - Breast pain [Not Recovered/Not Resolved]
  - Arthralgia [Not Recovered/Not Resolved]
  - Drug ineffective [Unknown]
  - Tourette^s disorder [Not Recovered/Not Resolved]

NARRATIVE: CASE EVENT DATE: 201311
